FAERS Safety Report 5041556-8 (Version None)
Quarter: 2006Q2

REPORT INFORMATION
  Report Type: 
  Country: None (occurrence: None)
  Receive Date: 20060627
  Receipt Date: 20060613
  Transmission Date: 20061013
  Serious: Yes (Other)
  Sender: FDA-Public Use
  Company Number: 2006075893

PATIENT
  Sex: Male

DRUGS (1)
  1. ZITHROMAX [Suspect]
     Indication: EAR CONGESTION
     Dosage: 500 MG
     Dates: start: 20060523, end: 20060524

REACTIONS (4)
  - BALANCE DISORDER [None]
  - DIZZINESS [None]
  - INSOMNIA [None]
  - TINNITUS [None]
